FAERS Safety Report 4727363-1 (Version None)
Quarter: 2005Q3

REPORT INFORMATION
  Report Type: 
  Country: None (occurrence: None)
  Receive Date: 20050727
  Receipt Date: 20050727
  Transmission Date: 20060218
  Serious: Yes (Life-Threatening, Hospitalization)
  Sender: FDA-Public Use
  Company Number: None

PATIENT
  Age: 77 Year
  Sex: Female
  Weight: 92 kg

DRUGS (8)
  1. TIKOSYN [Suspect]
     Indication: ATRIAL FIBRILLATION
     Dosage: 250 Q PO Q 12H
     Route: 048
     Dates: start: 20050411, end: 20050414
  2. LASIX [Concomitant]
  3. PEMITIL [Concomitant]
  4. ZETIA [Concomitant]
  5. ASPIRIN [Concomitant]
  6. ARICEPT [Concomitant]
  7. COUMADIN [Concomitant]
  8. BENICOR [Concomitant]

REACTIONS (3)
  - CARDIO-RESPIRATORY ARREST [None]
  - SINUS BRADYCARDIA [None]
  - VENTRICULAR TACHYCARDIA [None]
